FAERS Safety Report 6924218-9 (Version None)
Quarter: 2010Q3

REPORT INFORMATION
  Report Type: 
  Country: None (occurrence: None)
  Receive Date: 20100813
  Receipt Date: 20100804
  Transmission Date: 20110219
  Serious: Yes (Other)
  Sender: FDA-Public Use
  Company Number: DE-ABBOTT-10P-062-0661209-00

PATIENT
  Age: 17 Year
  Sex: Male

DRUGS (2)
  1. VALPROIC ACID [Suspect]
     Indication: EPILEPSY
     Dosage: UP TO  2500 MG
  2. LEVOTHYROXINE SODIUM [Concomitant]
     Indication: HYPOTHYROIDISM

REACTIONS (2)
  - CONVULSION [None]
  - PARADOXICAL DRUG REACTION [None]
